FAERS Safety Report 5465661-7 (Version None)
Quarter: 2007Q3

REPORT INFORMATION
  Report Type: 
  Country: None (occurrence: None)
  Receive Date: 20070924
  Receipt Date: 20070912
  Transmission Date: 20080115
  Serious: Yes (Death)
  Sender: FDA-Public Use
  Company Number: FR-ROCHE-517858

PATIENT
  Age: 72 Year
  Sex: Male

DRUGS (12)
  1. ROCEPHIN [Suspect]
     Indication: BRONCHITIS
     Dosage: FORM REPORTED AS INJECTABLE SOLUTION. STRENGTH REPORTED AS 1G/10 ML.
     Route: 042
     Dates: start: 20061017, end: 20061020
  2. COLCHIMAX [Suspect]
     Indication: CRYSTAL ARTHROPATHY
     Dosage: DOSAGE REGIMEN: 1 DOSE DAILY.
     Route: 048
     Dates: start: 20061018, end: 20061020
  3. TAHOR [Suspect]
     Indication: DYSLIPIDAEMIA
     Dosage: THE START DATE WAS REPORTED AS BEFORE JUNE 2006.
     Route: 048
  4. KARDEGIC [Suspect]
     Indication: DRUG USE FOR UNKNOWN INDICATION
     Dosage: THE START DATE WAS REPORTED AS BEFORE JUNE 2006.
     Route: 048
     Dates: end: 20061016
  5. PREVISCAN [Suspect]
     Route: 048
     Dates: start: 20061016, end: 20061020
  6. ALDACTONE [Concomitant]
  7. LASIX [Concomitant]
  8. PNEUMOREL [Concomitant]
  9. BRONCHODUAL [Concomitant]
     Dosage: STRENGTH REPORTED AS 50MCG/20MCG.
  10. TRIATEC [Concomitant]
  11. CARDENSIEL [Concomitant]
  12. EZETROL [Concomitant]

REACTIONS (1)
  - HAEMATURIA [None]
